FAERS Safety Report 22910622 (Version 5)
Quarter: 2025Q2

REPORT INFORMATION
  Report Type: Spontaneous
  Country: US (occurrence: US)
  Receive Date: 20230906
  Receipt Date: 20250627
  Transmission Date: 20250716
  Serious: No
  Sender: BIOGEN
  Company Number: US-BIOGEN-2021BI00965330

PATIENT
  Age: 60 Year
  Sex: Female

DRUGS (9)
  1. VUMERITY [Suspect]
     Active Substance: DIROXIMEL FUMARATE
     Indication: Multiple sclerosis
     Route: 050
     Dates: start: 20201208
  2. VUMERITY [Suspect]
     Active Substance: DIROXIMEL FUMARATE
     Dosage: 1ST 2 WKS 1 PILL EVERY OTHER DAY, THEN 1 PILL EACH DAY FOR 2 WEEKS, THEN 1 PILL 2X A DAY FOR 2 WK...
     Route: 050
     Dates: start: 20201228
  3. VUMERITY [Suspect]
     Active Substance: DIROXIMEL FUMARATE
     Route: 050
  4. VUMERITY [Suspect]
     Active Substance: DIROXIMEL FUMARATE
     Route: 050
     Dates: start: 20230830
  5. VUMERITY [Suspect]
     Active Substance: DIROXIMEL FUMARATE
     Route: 050
     Dates: start: 20200921
  6. IMODIUM [Concomitant]
     Active Substance: LOPERAMIDE HYDROCHLORIDE
     Indication: Gastrooesophageal reflux disease
     Route: 050
  7. PEPCID [Concomitant]
     Active Substance: FAMOTIDINE
     Indication: Gastrooesophageal reflux disease
     Route: 050
  8. KEPPRA [Concomitant]
     Active Substance: LEVETIRACETAM
     Indication: Product used for unknown indication
     Route: 050
  9. JARDIANCE [Concomitant]
     Active Substance: EMPAGLIFLOZIN
     Indication: Product used for unknown indication
     Route: 050

REACTIONS (22)
  - Inappropriate schedule of product administration [Not Recovered/Not Resolved]
  - Product dose omission in error [Unknown]
  - Prescribed underdose [Recovered/Resolved]
  - Laryngitis [Not Recovered/Not Resolved]
  - Blood urine present [Not Recovered/Not Resolved]
  - Stress [Not Recovered/Not Resolved]
  - Dysphagia [Not Recovered/Not Resolved]
  - Irritable bowel syndrome [Not Recovered/Not Resolved]
  - Arthralgia [Not Recovered/Not Resolved]
  - Multiple sclerosis [Unknown]
  - Weight decreased [Unknown]
  - Multiple allergies [Unknown]
  - Pain in extremity [Unknown]
  - Insomnia [Unknown]
  - Hypertension [Unknown]
  - Blood glucose increased [Unknown]
  - Pancreatic neoplasm [Unknown]
  - Illness [Unknown]
  - Fatigue [Unknown]
  - Gastrointestinal disorder [Recovered/Resolved]
  - Diarrhoea [Not Recovered/Not Resolved]
  - Vomiting [Unknown]

NARRATIVE: CASE EVENT DATE: 20201228
